FAERS Safety Report 4562822-6 (Version None)
Quarter: 2005Q1

REPORT INFORMATION
  Report Type: 
  Country: None (occurrence: None)
  Receive Date: 20050127
  Receipt Date: 20050117
  Transmission Date: 20050727
  Serious: Yes (Death)
  Sender: FDA-Public Use
  Company Number: AT-GLAXOSMITHKLINE-B0365164A

PATIENT
  Age: 86 Year
  Sex: Female
  Weight: 68 kg

DRUGS (2)
  1. REQUIP [Suspect]
     Indication: ILL-DEFINED DISORDER
     Dosage: .25MG THREE TIMES PER DAY
     Route: 065
     Dates: start: 20041123
  2. LEVODOPA + BENSERAZIDE [Concomitant]
     Indication: ILL-DEFINED DISORDER
     Dosage: 1Z THREE TIMES PER DAY
     Route: 048

REACTIONS (2)
  - CARDIOVASCULAR DISORDER [None]
  - DEATH [None]
